FAERS Safety Report 4749217-7 (Version None)
Quarter: 2005Q3

REPORT INFORMATION
  Report Type: 
  Country: None (occurrence: None)
  Receive Date: 20050817
  Receipt Date: 20050719
  Transmission Date: 20060218
  Serious: No
  Sender: FDA-Public Use
  Company Number: 11925

PATIENT
  Age: 8 Year
  Sex: Male

DRUGS (9)
  1. METHOTREXATE [Suspect]
     Indication: RHEUMATOID ARTHRITIS
     Dosage: SEE IMAGE, SC
     Route: 057
     Dates: start: 19980618, end: 19981028
  2. METHOTREXATE [Suspect]
     Indication: RHEUMATOID ARTHRITIS
     Dosage: SEE IMAGE, SC
     Route: 057
     Dates: start: 19981029, end: 19990126
  3. METHOTREXATE [Suspect]
     Indication: RHEUMATOID ARTHRITIS
     Dosage: SEE IMAGE, SC
     Route: 057
     Dates: start: 19990127, end: 19991216
  4. METHOTREXATE [Suspect]
     Indication: RHEUMATOID ARTHRITIS
     Dosage: SEE IMAGE, SC
     Route: 057
     Dates: start: 19991217, end: 20010613
  5. METHOTREXATE [Suspect]
     Indication: RHEUMATOID ARTHRITIS
     Dosage: SEE IMAGE, SC
     Route: 057
     Dates: start: 20010614, end: 20020401
  6. METHOTREXATE [Suspect]
     Indication: RHEUMATOID ARTHRITIS
     Dosage: SEE IMAGE, SC
     Route: 057
     Dates: start: 20041126
  7. CALCICHEW [Concomitant]
  8. PREDNISOLONE [Concomitant]
  9. IMMUNOGLOBULINS [Concomitant]

REACTIONS (1)
  - BONE DENSITY DECREASED [None]
